FAERS Safety Report 17324385 (Version 1)
Quarter: 2020Q1

REPORT INFORMATION
  Report Type: Spontaneous
  Country: CN (occurrence: CN)
  Receive Date: 20200127
  Receipt Date: 20200127
  Transmission Date: 20200409
  Serious: Yes (Other)
  Sender: FDA-Public Use
  Company Number: CN-BEH-2020112015

PATIENT
  Age: 56 Year
  Sex: Female
  Weight: 40 kg

DRUGS (1)
  1. ALBUMINAR [Suspect]
     Active Substance: ALBUMIN HUMAN
     Indication: HYPOALBUMINAEMIA
     Dosage: 10 GRAM, BID
     Route: 041
     Dates: start: 20191218, end: 20191218

REACTIONS (10)
  - Mydriasis [Recovering/Resolving]
  - Respiratory acidosis [Recovering/Resolving]
  - Heart rate increased [Recovering/Resolving]
  - Peripheral coldness [Recovering/Resolving]
  - Rales [Recovering/Resolving]
  - Metabolic acidosis [Recovering/Resolving]
  - Blood pressure increased [Recovering/Resolving]
  - Hyperhidrosis [Recovering/Resolving]
  - Pupillary light reflex tests abnormal [Recovering/Resolving]
  - Coma [Recovering/Resolving]

NARRATIVE: CASE EVENT DATE: 20191218
